FAERS Safety Report 24253200 (Version 3)
Quarter: 2024Q3

REPORT INFORMATION
  Report Type: Spontaneous
  Country: IT (occurrence: IT)
  Receive Date: 20240827
  Receipt Date: 20240903
  Transmission Date: 20241017
  Serious: Yes (Other)
  Sender: JOHNSON AND JOHNSON
  Company Number: IT-Desitin-2024-01902

PATIENT
  Age: 27 Year
  Sex: Male

DRUGS (35)
  1. TOPAMAX [Suspect]
     Active Substance: TOPIRAMATE
     Indication: Lennox-Gastaut syndrome
     Route: 048
  2. TOPAMAX [Suspect]
     Active Substance: TOPIRAMATE
     Indication: Infantile spasms
  3. ESLICARBAZEPINE [Suspect]
     Active Substance: ESLICARBAZEPINE
     Indication: Lennox-Gastaut syndrome
  4. ESLICARBAZEPINE [Suspect]
     Active Substance: ESLICARBAZEPINE
     Indication: Infantile spasms
  5. CORTICOTROPIN [Suspect]
     Active Substance: CORTICOTROPIN
     Indication: Lennox-Gastaut syndrome
  6. CORTICOTROPIN [Suspect]
     Active Substance: CORTICOTROPIN
     Indication: Infantile spasms
  7. VIGABATRIN [Suspect]
     Active Substance: VIGABATRIN
     Indication: Lennox-Gastaut syndrome
  8. VIGABATRIN [Suspect]
     Active Substance: VIGABATRIN
     Indication: Infantile spasms
  9. ETHOSUXIMIDE [Suspect]
     Active Substance: ETHOSUXIMIDE
     Indication: Lennox-Gastaut syndrome
  10. ETHOSUXIMIDE [Suspect]
     Active Substance: ETHOSUXIMIDE
     Indication: Infantile spasms
  11. PHENOBARBITAL [Suspect]
     Active Substance: PHENOBARBITAL
     Indication: Lennox-Gastaut syndrome
  12. PHENOBARBITAL [Suspect]
     Active Substance: PHENOBARBITAL
     Indication: Infantile spasms
  13. CLOBAZAM [Interacting]
     Active Substance: CLOBAZAM
     Indication: Lennox-Gastaut syndrome
     Route: 065
  14. CLOBAZAM [Interacting]
     Active Substance: CLOBAZAM
     Indication: Infantile spasms
     Route: 065
  15. CLONAZEPAM [Suspect]
     Active Substance: CLONAZEPAM
     Indication: Lennox-Gastaut syndrome
  16. CLONAZEPAM [Suspect]
     Active Substance: CLONAZEPAM
     Indication: Infantile spasms
  17. LAMOTRIGINE [Suspect]
     Active Substance: LAMOTRIGINE
     Indication: Lennox-Gastaut syndrome
  18. LAMOTRIGINE [Suspect]
     Active Substance: LAMOTRIGINE
     Indication: Infantile spasms
  19. LEVETIRACETAM [Suspect]
     Active Substance: LEVETIRACETAM
     Indication: Lennox-Gastaut syndrome
     Route: 065
  20. LEVETIRACETAM [Suspect]
     Active Substance: LEVETIRACETAM
     Indication: Infantile spasms
  21. LACOSAMIDE [Suspect]
     Active Substance: LACOSAMIDE
     Indication: Lennox-Gastaut syndrome
  22. LACOSAMIDE [Suspect]
     Active Substance: LACOSAMIDE
     Indication: Infantile spasms
  23. PERAMPANEL [Suspect]
     Active Substance: PERAMPANEL
     Indication: Lennox-Gastaut syndrome
  24. PERAMPANEL [Suspect]
     Active Substance: PERAMPANEL
     Indication: Infantile spasms
  25. NITRAZEPAM [Suspect]
     Active Substance: NITRAZEPAM
     Indication: Lennox-Gastaut syndrome
  26. NITRAZEPAM [Suspect]
     Active Substance: NITRAZEPAM
     Indication: Infantile spasms
  27. ZONISAMIDE [Suspect]
     Active Substance: ZONISAMIDE
     Indication: Lennox-Gastaut syndrome
  28. ZONISAMIDE [Suspect]
     Active Substance: ZONISAMIDE
     Indication: Infantile spasms
  29. CENOBAMATE [Interacting]
     Active Substance: CENOBAMATE
     Indication: Lennox-Gastaut syndrome
  30. VALPROIC ACID [Suspect]
     Active Substance: VALPROIC ACID
     Indication: Lennox-Gastaut syndrome
  31. VALPROIC ACID [Suspect]
     Active Substance: VALPROIC ACID
     Indication: Infantile spasms
  32. RUFINAMIDE [Suspect]
     Active Substance: RUFINAMIDE
     Indication: Lennox-Gastaut syndrome
  33. RUFINAMIDE [Suspect]
     Active Substance: RUFINAMIDE
     Indication: Infantile spasms
  34. BRIVARACETAM [Suspect]
     Active Substance: BRIVARACETAM
     Indication: Lennox-Gastaut syndrome
  35. BRIVARACETAM [Suspect]
     Active Substance: BRIVARACETAM
     Indication: Infantile spasms

REACTIONS (3)
  - Drug ineffective [Unknown]
  - Somnolence [Recovered/Resolved]
  - Drug interaction [Recovered/Resolved]
